FAERS Safety Report 6003841-2 (Version None)
Quarter: 2008Q4

REPORT INFORMATION
  Report Type: 
  Country: None (occurrence: None)
  Receive Date: 20081216
  Receipt Date: 20081113
  Transmission Date: 20090506
  Serious: No
  Sender: FDA-Public Use
  Company Number: US-BAYER-200838538NA

PATIENT
  Age: 55 Year
  Sex: Female
  Weight: 57 kg

DRUGS (3)
  1. CLIMARA [Suspect]
     Indication: DRUG USE FOR UNKNOWN INDICATION
     Route: 062
     Dates: start: 20050101
  2. CLIMARA [Suspect]
     Route: 062
     Dates: start: 20050101
  3. ENALAPRIL [Concomitant]

REACTIONS (5)
  - APPLICATION SITE ERYTHEMA [None]
  - APPLICATION SITE PRURITUS [None]
  - APPLICATION SITE REACTION [None]
  - APPLICATION SITE VESICLES [None]
  - SKIN SWELLING [None]
